FAERS Safety Report 7428444-4 (Version None)
Quarter: 2011Q2

REPORT INFORMATION
  Report Type: 
  Country: None (occurrence: None)
  Receive Date: 20110421
  Receipt Date: 20110419
  Transmission Date: 20111010
  Serious: Yes (Death, Other)
  Sender: FDA-Public Use
  Company Number: PHHY2011CA08409

PATIENT
  Sex: Female
  Weight: 62.5 kg

DRUGS (6)
  1. SYNTHOID [Concomitant]
  2. ENLCIUR [Concomitant]
  3. RIVASTIGMINE [Suspect]
     Indication: DEMENTIA
     Dosage: 10 UKN, UNK
     Route: 062
     Dates: start: 20100214, end: 20100828
  4. DIOVAN [Concomitant]
  5. CENTIUM [Concomitant]
  6. VITAMIN D [Concomitant]

REACTIONS (3)
  - INTRACRANIAL PRESSURE INCREASED [None]
  - DEATH [None]
  - BRAIN CANCER METASTATIC [None]
